FAERS Safety Report 15589353 (Version 1)
Quarter: 2018Q4

REPORT INFORMATION
  Report Type: Spontaneous
  Country: US (occurrence: US)
  Receive Date: 20181106
  Receipt Date: 20181106
  Transmission Date: 20190205
  Serious: Yes (Other)
  Sender: FDA-Public Use
  Company Number: US-ROCHE-2210291

PATIENT
  Age: 76 Year
  Sex: Female
  Weight: 104.42 kg

DRUGS (12)
  1. LEVONOX [Concomitant]
     Active Substance: ENOXAPARIN
     Indication: ANTICOAGULANT THERAPY
     Route: 065
  2. COQ10 PLUS PRODUCT NOS [Concomitant]
     Active Substance: DIETARY SUPPLEMENT\HERBALS\HOMEOPATHICS\UBIDECARENONE
     Route: 065
  3. DECADRON [Concomitant]
     Active Substance: DEXAMETHASONE
     Route: 065
  4. NORCO [Concomitant]
     Active Substance: ACETAMINOPHEN\HYDROCODONE BITARTRATE
     Indication: ARTHRALGIA
     Dosage: 7.5-325 MG AS NEEDED, AS REQUIRED
     Route: 065
  5. MORPHINUM HYDROCHLORICUM [Concomitant]
     Indication: ARTHRALGIA
     Route: 065
  6. KEPPRA [Concomitant]
     Active Substance: LEVETIRACETAM
     Indication: SEIZURE
     Route: 065
  7. MIRALAX [Concomitant]
     Active Substance: POLYETHYLENE GLYCOL 3350
     Route: 065
  8. SENNA [Concomitant]
     Active Substance: SENNA LEAF\SENNOSIDES\SENNOSIDES A AND B
     Route: 065
  9. ALECENSA [Suspect]
     Active Substance: ALECTINIB HYDROCHLORIDE
     Indication: BRAIN NEOPLASM MALIGNANT
     Dosage: PILLS
     Route: 065
  10. ALECENSA [Suspect]
     Active Substance: ALECTINIB HYDROCHLORIDE
     Indication: LUNG NEOPLASM MALIGNANT
  11. TRENTAL [Concomitant]
     Active Substance: PENTOXIFYLLINE
     Route: 065
  12. VITAMIN A [Concomitant]
     Active Substance: VITAMIN A
     Route: 065

REACTIONS (4)
  - Small intestinal perforation [Recovered/Resolved]
  - Anaemia [Recovering/Resolving]
  - Haemorrhage [Recovered/Resolved]
  - Haemoglobin decreased [Recovering/Resolving]

NARRATIVE: CASE EVENT DATE: 20181023
